FAERS Safety Report 13331271 (Version 4)
Quarter: 2017Q2

REPORT INFORMATION
  Report Type: Spontaneous
  Country: GB (occurrence: GB)
  Receive Date: 20170314
  Receipt Date: 20170419
  Transmission Date: 20170830
  Serious: Yes (Hospitalization, Other)
  Sender: FDA-Public Use
  Company Number: GB-TAKEDA-2017MPI002111

PATIENT
  Age: 64 Year
  Sex: Female
  Weight: 84 kg

DRUGS (6)
  1. ADCAL D3 [Concomitant]
     Active Substance: CALCIUM CARBONATE\CHOLECALCIFEROL
     Dosage: UNK, QD
     Route: 065
     Dates: start: 20170313
  2. LACTULOSE. [Concomitant]
     Active Substance: LACTULOSE
     Dosage: 10 ML, BID
     Route: 048
     Dates: start: 20170313
  3. BETOPTIC [Concomitant]
     Active Substance: BETAXOLOL HYDROCHLORIDE
     Dosage: 10 ML, BID
     Route: 047
     Dates: start: 20160310
  4. VELCADE [Suspect]
     Active Substance: BORTEZOMIB
     Indication: PLASMA CELL MYELOMA
     Dosage: 2.5 MG, UNK
     Route: 058
     Dates: start: 20170109, end: 20170302
  5. LAXIDO ORANGE [Concomitant]
     Indication: CONSTIPATION
     Dosage: UNK, QD
     Route: 048
     Dates: start: 20170206
  6. SENNA                              /00142201/ [Concomitant]
     Active Substance: SENNA LEAF
     Dosage: UNK UNK, QD
     Route: 065
     Dates: start: 20170313

REACTIONS (5)
  - Ill-defined disorder [Unknown]
  - Neuropathy peripheral [Unknown]
  - Dizziness [Recovered/Resolved]
  - Portal hypertension [Unknown]
  - Muscular weakness [Unknown]
